FAERS Safety Report 20595258 (Version 1)
Quarter: 2022Q1

REPORT INFORMATION
  Report Type: Spontaneous
  Country: US (occurrence: None)
  Receive Date: 20220314
  Receipt Date: 20220314
  Transmission Date: 20220423
  Serious: Yes (Life-Threatening, Hospitalization, Other)
  Sender: FDA-Public Use
  Company Number: None

PATIENT
  Age: 21 Year
  Sex: Male

DRUGS (2)
  1. CORICIDIN HBP COUGH AND COLD [Suspect]
     Active Substance: CHLORPHENIRAMINE MALEATE\DEXTROMETHORPHAN HYDROBROMIDE
     Indication: Substance use
     Dosage: OTHER QUANTITY : 16 TABLET(S);?
     Route: 048
  2. Triple c pills [Concomitant]

REACTIONS (1)
  - Overdose [None]

NARRATIVE: CASE EVENT DATE: 20220312
